FAERS Safety Report 21381511 (Version 1)
Quarter: 2022Q3

REPORT INFORMATION
  Report Type: Spontaneous
  Country: US (occurrence: None)
  Receive Date: 20220926
  Receipt Date: 20220926
  Transmission Date: 20221027
  Serious: No
  Sender: FDA-Public Use
  Company Number: None

PATIENT
  Age: 67 Year
  Sex: Female
  Weight: 55.8 kg

DRUGS (6)
  1. QVAR REDIHALER [Suspect]
     Active Substance: BECLOMETHASONE DIPROPIONATE
     Indication: Asthma
     Dosage: OTHER STRENGTH : MCG;?OTHER QUANTITY : 120 INHALATION(S);?FREQUENCY : TWICE A DAY;?
     Route: 055
     Dates: start: 20220810, end: 20220920
  2. OLMESARTAN [Concomitant]
     Active Substance: OLMESARTAN
  3. medoxomil [Concomitant]
  4. SYNTHROID [Concomitant]
     Active Substance: LEVOTHYROXINE SODIUM
  5. FAMOTIDINE [Concomitant]
     Active Substance: FAMOTIDINE
  6. LORATADINE [Concomitant]
     Active Substance: LORATADINE

REACTIONS (4)
  - Device malfunction [None]
  - Device issue [None]
  - Asthma [None]
  - Product quality issue [None]

NARRATIVE: CASE EVENT DATE: 20220908
